FAERS Safety Report 8347588-6 (Version None)
Quarter: 2012Q2

REPORT INFORMATION
  Report Type: 
  Country: None (occurrence: None)
  Receive Date: 20120509
  Receipt Date: 20120427
  Transmission Date: 20120825
  Serious: Yes (Hospitalization)
  Sender: FDA-Public Use
  Company Number: IT-AMGEN-ITASP2012027858

PATIENT
  Age: 46 Year
  Sex: Female

DRUGS (2)
  1. PLAQUENIL [Concomitant]
     Dosage: UNK
  2. ETANERCEPT [Suspect]
     Indication: RHEUMATOID ARTHRITIS
     Dosage: 50 MG, WEEKLY
     Route: 058
     Dates: start: 20120119, end: 20120419

REACTIONS (1)
  - TRIGEMINAL NEURALGIA [None]
